FAERS Safety Report 13123821 (Version 5)
Quarter: 2017Q1

REPORT INFORMATION
  Report Type: Spontaneous
  Country: NZ (occurrence: NZ)
  Receive Date: 20170118
  Receipt Date: 20170307
  Transmission Date: 20170428
  Serious: Yes (Hospitalization, Other)
  Sender: FDA-Public Use
  Company Number: NZ-ROCHE-1880410

PATIENT
  Age: 83 Year
  Sex: Male
  Weight: 69 kg

DRUGS (8)
  1. ASPIRIN. [Concomitant]
     Active Substance: ASPIRIN
     Indication: MYOCARDIAL INFARCTION
     Route: 048
  2. PERINDOPRIL [Concomitant]
     Active Substance: PERINDOPRIL
     Indication: MYOCARDIAL INFARCTION
     Route: 048
  3. METHYLPREDNISOLONE. [Concomitant]
     Active Substance: METHYLPREDNISOLONE
     Indication: PREMEDICATION
     Route: 065
  4. ISOSORBIDE MONONITRATE. [Concomitant]
     Active Substance: ISOSORBIDE MONONITRATE
     Indication: ANGINA PECTORIS
     Route: 048
  5. GREEN TEA EXTRACT [Concomitant]
     Route: 048
  6. CURCUMIN [Concomitant]
     Active Substance: CURCUMIN
     Dosage: CURCUMIN SUPPLEMENT
     Route: 048
  7. GAZYVA [Suspect]
     Active Substance: OBINUTUZUMAB
     Indication: CHRONIC LYMPHOCYTIC LEUKAEMIA
     Dosage: DAY 1,2,8,15 AS PER CLL PROTOCOL
     Route: 042
     Dates: start: 20170116, end: 20170116
  8. SODIUM CHLORIDE. [Concomitant]
     Active Substance: SODIUM CHLORIDE
     Dosage: 0.9% INFUSION BAXTER
     Route: 065

REACTIONS (5)
  - Arteriosclerosis [Unknown]
  - Ejection fraction decreased [Unknown]
  - Cardiac disorder [Unknown]
  - Chest pain [Recovering/Resolving]
  - Myocardial infarction [Recovering/Resolving]

NARRATIVE: CASE EVENT DATE: 20170116
